FAERS Safety Report 7248852-4 (Version None)
Quarter: 2011Q1

REPORT INFORMATION
  Report Type: 
  Country: None (occurrence: None)
  Receive Date: 20110128
  Receipt Date: 20100416
  Transmission Date: 20110831
  Serious: Yes (Hospitalization, Disabling, Other)
  Sender: FDA-Public Use
  Company Number: US-BAYER-200921666NA

PATIENT
  Sex: Female
  Weight: 105 kg

DRUGS (8)
  1. OTHER ANALGESICS AND ANTIPYRETICS [Concomitant]
  2. COUMADIN [Suspect]
  3. UNCODEABLE ^UNCLASSIFIABLE^ [Concomitant]
  4. WARFARIN SODIUM [Concomitant]
     Route: 065
     Dates: start: 20070519, end: 20071115
  5. YASMIN [Suspect]
     Indication: CONTRACEPTION
     Route: 048
     Dates: start: 20060607, end: 20070519
  6. EXCEDRIN ASPIRIN FREE [Concomitant]
  7. UNCODEABLE ^UNCLASSIFIABLE^ [Concomitant]
  8. YAZ [Suspect]
     Indication: CONTRACEPTION
     Route: 048
     Dates: start: 20060607, end: 20070519

REACTIONS (6)
  - SUPERIOR SAGITTAL SINUS THROMBOSIS [None]
  - HEADACHE [None]
  - ANXIETY [None]
  - HEMIPARESIS [None]
  - APHASIA [None]
  - VISION BLURRED [None]
